FAERS Safety Report 6349706-8 (Version None)
Quarter: 2009Q3

REPORT INFORMATION
  Report Type: 
  Country: None (occurrence: None)
  Receive Date: 20090911
  Receipt Date: 20090907
  Transmission Date: 20100115
  Serious: Yes (Death)
  Sender: FDA-Public Use
  Company Number: MX-ABBOTT-09P-107-0595640-00

PATIENT
  Sex: Male

DRUGS (2)
  1. HUMIRA [Suspect]
     Indication: PSORIASIS
     Dosage: FIRST DOSE
     Route: 058
  2. HUMIRA [Suspect]
     Route: 058

REACTIONS (2)
  - LYMPHOMA [None]
  - SPLENIC ABSCESS [None]
